FAERS Safety Report 20480895 (Version 1)
Quarter: 2022Q1

REPORT INFORMATION
  Report Type: Spontaneous
  Country: US (occurrence: None)
  Receive Date: 20220216
  Receipt Date: 20220216
  Transmission Date: 20220424
  Serious: No
  Sender: FDA-Public Use
  Company Number: None

PATIENT
  Age: 50 Year
  Sex: Female
  Weight: 114.75 kg

DRUGS (2)
  1. AVASTIN [Suspect]
     Active Substance: BEVACIZUMAB
     Indication: Diabetic retinopathy
     Route: 047
  2. AVASTIN [Suspect]
     Active Substance: BEVACIZUMAB
     Indication: Macular oedema

REACTIONS (4)
  - Headache [None]
  - Nausea [None]
  - Vomiting [None]
  - Drug ineffective [None]
